FAERS Safety Report 5751326-0 (Version None)
Quarter: 2008Q2

REPORT INFORMATION
  Report Type: 
  Country: None (occurrence: None)
  Receive Date: 20080528
  Receipt Date: 20080516
  Transmission Date: 20081010
  Serious: Yes (Hospitalization)
  Sender: FDA-Public Use
  Company Number: FR-PFIZER INC-2008042711

PATIENT
  Sex: Female

DRUGS (1)
  1. LYRICA [Suspect]
     Indication: NEURALGIA

REACTIONS (1)
  - TOXIC SKIN ERUPTION [None]
